FAERS Safety Report 4529888-0 (Version None)
Quarter: 2004Q4

REPORT INFORMATION
  Report Type: 
  Country: None (occurrence: None)
  Receive Date: 20041214
  Receipt Date: 20041201
  Transmission Date: 20050328
  Serious: Yes (Other)
  Sender: FDA-Public Use
  Company Number: 25800

PATIENT
  Age: 80 Year
  Sex: Male

DRUGS (5)
  1. ALDARA [Suspect]
     Indication: ACTINIC KERATOSIS
     Dosage: 1 SACHET, 3 IN 1 WEEK(S), TOPICAL
     Route: 061
     Dates: start: 20041013, end: 20041116
  2. NIACIN [Suspect]
     Dosage: ORAL
     Route: 048
     Dates: start: 20041021, end: 20041109
  3. HYDROCHLOROTHIAZIDE [Concomitant]
  4. ASPIRIN [Concomitant]
  5. VITAMIN E [Concomitant]

REACTIONS (3)
  - LOCALISED EXFOLIATION [None]
  - RASH GENERALISED [None]
  - RASH MACULO-PAPULAR [None]
